FAERS Safety Report 26218676 (Version 1)
Quarter: 2025Q4

REPORT INFORMATION
  Report Type: Spontaneous
  Country: EU (occurrence: EU)
  Receive Date: 20251231
  Receipt Date: 20251231
  Transmission Date: 20260117
  Serious: Yes (Hospitalization)
  Sender: AMGEN
  Company Number: EU-AMGEN-FRASP2025255386

PATIENT
  Age: 66 Year
  Sex: Female
  Weight: 57 kg

DRUGS (6)
  1. BEVACIZUMAB [Suspect]
     Active Substance: BEVACIZUMAB
     Indication: Ovarian cancer
     Dosage: 15 MILLIGRAM/KILOGRAM, QH
     Route: 040
     Dates: start: 20200925, end: 20200925
  2. DOSTARLIMAB [Suspect]
     Active Substance: DOSTARLIMAB
     Indication: Ovarian cancer
     Dosage: 500 MILLIGRAM
     Route: 040
     Dates: start: 20200703, end: 20200703
  3. CARBOPLATIN [Suspect]
     Active Substance: CARBOPLATIN
     Indication: Ovarian cancer
     Dosage: UNK (6 AUC,U)
     Route: 040
     Dates: start: 20200609, end: 2020
  4. CARBOPLATIN [Suspect]
     Active Substance: CARBOPLATIN
     Dosage: UNK (6 AUC,U)
     Route: 040
     Dates: start: 20200925
  5. PACLITAXEL [Suspect]
     Active Substance: PACLITAXEL
     Indication: Ovarian cancer
     Dosage: 264 MILLIGRAM
     Route: 040
     Dates: start: 20200609, end: 2020
  6. PACLITAXEL [Suspect]
     Active Substance: PACLITAXEL
     Dosage: 256 MILLIGRAM
     Route: 040
     Dates: start: 20200925

REACTIONS (2)
  - Sepsis [Recovered/Resolved]
  - Septic shock [Recovered/Resolved]

NARRATIVE: CASE EVENT DATE: 20201014
